FAERS Safety Report 7894606-5 (Version None)
Quarter: 2011Q4

REPORT INFORMATION
  Report Type: 
  Country: None (occurrence: None)
  Receive Date: 20111106
  Receipt Date: 20110816
  Transmission Date: 20120403
  Serious: No
  Sender: FDA-Public Use
  Company Number: US-AMGEN-USASP2011042005

PATIENT
  Age: 16 Year
  Sex: Female
  Weight: 49.887 kg

DRUGS (1)
  1. ENBREL [Suspect]
     Indication: PSORIASIS
     Dosage: UNK
     Dates: start: 20100101

REACTIONS (3)
  - NAUSEA [None]
  - HEADACHE [None]
  - MALAISE [None]
